FAERS Safety Report 10418860 (Version 1)
Quarter: 2014Q2

REPORT INFORMATION
  Report Type: Spontaneous
  Country: US (occurrence: None)
  Receive Date: 20140625
  Receipt Date: 20140625
  Transmission Date: 20141212
  Serious: No
  Sender: FDA-Public Use
  Company Number: A-US2014-96720

PATIENT
  Age: 60 Year
  Sex: Female

DRUGS (9)
  1. OPSUMIT (MACITENTAN) [Suspect]
     Indication: PULMONARY ARTERIAL HYPERTENSION
     Route: 048
     Dates: start: 20140314
  2. TYVASO (TREPROSTINIL SODIUM) [Concomitant]
  3. ADCIRCA (TADALAFIL) [Concomitant]
  4. FUROSEMIDE (FUROSEMIDE SODIUM) [Concomitant]
  5. METOPROLOL [Concomitant]
  6. PREDNISONE [Concomitant]
  7. SINGULAIR (MONTELUKAST SODIUM) [Concomitant]
  8. THEOPHYLLINE [Concomitant]
  9. CEVIMELINE [Concomitant]

REACTIONS (5)
  - Pyrexia [None]
  - Chills [None]
  - Nasal congestion [None]
  - Headache [None]
  - Pulmonary hypertension [None]
